FAERS Safety Report 16738126 (Version 1)
Quarter: 2019Q3

REPORT INFORMATION
  Report Type: Spontaneous
  Country: DE (occurrence: DE)
  Receive Date: 20190824
  Receipt Date: 20190824
  Transmission Date: 20191005
  Serious: Yes (Hospitalization)
  Sender: FDA-Public Use
  Company Number: DE-009507513-1908DEU007587

PATIENT
  Sex: Male
  Weight: 75 kg

DRUGS (5)
  1. IPRATROPIUM BROMIDE. [Suspect]
     Active Substance: IPRATROPIUM BROMIDE
     Indication: ASTHMA
     Dosage: UNK UNK, QID; DOSE 4(UNIT NOT MENTIONED)
     Route: 065
  2. BUDESONIDE. [Suspect]
     Active Substance: BUDESONIDE
     Indication: ASTHMA
     Dosage: UNK UNK, QID; DOSE 4(UNIT NOT MENTIONED)
     Route: 065
  3. FLUTICASONE PROPIONATE (+) SALMETEROL XINAFOATE [Suspect]
     Active Substance: FLUTICASONE PROPIONATE\SALMETEROL XINAFOATE
     Indication: ASTHMA
     Dosage: 2 DF, QD
     Route: 065
  4. DESLORATADINE. [Suspect]
     Active Substance: DESLORATADINE
     Indication: ASTHMA
     Dosage: 2 DF, QD
     Route: 065
  5. ALBUTEROL. [Suspect]
     Active Substance: ALBUTEROL
     Indication: ASTHMA
     Dosage: UNK UNK, QID; DOSE 4(UNIT NOT MENTIONED)
     Route: 065

REACTIONS (4)
  - Insomnia [Unknown]
  - Dyspnoea [Unknown]
  - Blood immunoglobulin E decreased [Unknown]
  - Asthma [Unknown]
